FAERS Safety Report 8504821 (Version 6)
Quarter: 2013Q1

REPORT INFORMATION
  Report Type: Report from Study
  Country: GB (occurrence: GB)
  Receive Date: 20120411
  Receipt Date: 20130122
  Transmission Date: 20140127
  Serious: Yes (Hospitalization)
  Sender: FDA-Public Use
  Company Number: GB-PFIZER INC-2012080175

PATIENT
  Age: 67 Year
  Sex: Male

DRUGS (3)
  1. SUTENT [Suspect]
     Indication: TRANSITIONAL CELL CARCINOMA
     Dosage: 12.5 MG, UNK
     Dates: start: 20110926, end: 20120203
  2. CISPLATIN [Concomitant]
     Indication: TRANSITIONAL CELL CARCINOMA
     Dosage: UNK
     Route: 042
     Dates: start: 20110926, end: 20120123
  3. GEMCITABINE [Concomitant]
     Indication: TRANSITIONAL CELL CARCINOMA
     Dosage: UNK
     Route: 042
     Dates: start: 20110926, end: 20120130

REACTIONS (1)
  - Gastroenteritis [Recovered/Resolved]
